FAERS Safety Report 13954596 (Version 1)
Quarter: 2017Q3

REPORT INFORMATION
  Report Type: Spontaneous
  Country: CA (occurrence: CA)
  Receive Date: 20170911
  Receipt Date: 20170911
  Transmission Date: 20171128
  Serious: Yes (Hospitalization, Other)
  Sender: FDA-Public Use
  Company Number: CA-TARO PHARMACEUTICALS USA.,INC-2017SUN00311

PATIENT
  Age: 39 Year
  Sex: Male

DRUGS (7)
  1. LEVOTHYROXINE [Concomitant]
     Indication: HYPOTHYROIDISM
     Dosage: 0.100 MG, DAILY
     Route: 048
  2. BUSPIRONE [Concomitant]
     Dosage: 10 MG, BID
     Route: 048
  3. HYDROXYZINE [Concomitant]
     Active Substance: HYDROXYZINE HYDROCHLORIDE
     Dosage: 50 MG, EVERY NIGHT
     Route: 048
  4. PHENYTOIN SODIUM. [Suspect]
     Active Substance: PHENYTOIN SODIUM
     Indication: EPILEPSY
     Dosage: 175 MG, DAILY (75/100 MG EVERY MORNING/EVENING)
     Route: 048
  5. TOPIRAMATE [Concomitant]
     Dosage: 125 MG, DAILY (50/25/50 MGEVERY MORNING/NOON/EVENING)
     Route: 048
  6. LORAZEPAM [Concomitant]
     Dosage: 1 MG, DAILY (AS NEEDED)
     Route: 048
  7. CICLOPIROX. [Concomitant]
     Active Substance: CICLOPIROX
     Dosage: UNK UNK, BID
     Route: 061

REACTIONS (7)
  - Hypothyroidism [Unknown]
  - Adrenal insufficiency [Unknown]
  - Stupor [Unknown]
  - Anticonvulsant drug level increased [Recovered/Resolved]
  - Secondary hypogonadism [Unknown]
  - Toxicity to various agents [Recovered/Resolved]
  - Ataxia [Recovered/Resolved]
